FAERS Safety Report 13426380 (Version 2)
Quarter: 2017Q2

REPORT INFORMATION
  Report Type: Spontaneous
  Country: US (occurrence: US)
  Receive Date: 20170411
  Receipt Date: 20170508
  Transmission Date: 20170830
  Serious: No
  Sender: FDA-Public Use
  Company Number: US-ASTRAZENECA-2017SE34493

PATIENT
  Age: 648 Month
  Sex: Male
  Weight: 108.9 kg

DRUGS (1)
  1. BYDUREON [Suspect]
     Active Substance: EXENATIDE
     Indication: TYPE 2 DIABETES MELLITUS
     Route: 058
     Dates: start: 201702

REACTIONS (5)
  - Wrong technique in product usage process [Unknown]
  - Injection site pruritus [Recovered/Resolved]
  - Product quality issue [Unknown]
  - Injection site nodule [Not Recovered/Not Resolved]
  - Drug administration error [Unknown]

NARRATIVE: CASE EVENT DATE: 201702
